FAERS Safety Report 9799508 (Version 1)
Quarter: 2014Q1

REPORT INFORMATION
  Report Type: Spontaneous
  Country: US (occurrence: US)
  Receive Date: 20140106
  Receipt Date: 20140106
  Transmission Date: 20141002
  Serious: No
  Sender: FDA-Public Use
  Company Number: US-PFIZER INC-2014001093

PATIENT
  Age: 5 Month
  Sex: Female

DRUGS (1)
  1. CHILDRENS ADVIL [Suspect]
     Indication: PYREXIA
     Dosage: UNK

REACTIONS (2)
  - Drug administered to patient of inappropriate age [Unknown]
  - Drug ineffective [Unknown]
